FAERS Safety Report 19646574 (Version 2)
Quarter: 2021Q3

REPORT INFORMATION
  Report Type: Spontaneous
  Country: US (occurrence: US)
  Receive Date: 20210802
  Receipt Date: 20210913
  Transmission Date: 20211014
  Serious: Yes (Hospitalization, Other)
  Sender: FDA-Public Use
  Company Number: US-DECIPHERA PHARMACEUTICALS LLC-2021US000632

PATIENT
  Age: 39 Year
  Sex: Female

DRUGS (1)
  1. QINLOCK [Suspect]
     Active Substance: RIPRETINIB
     Indication: GASTROINTESTINAL STROMAL TUMOUR
     Dosage: 150 MILLIGRAM, QD
     Route: 048
     Dates: start: 20201126

REACTIONS (7)
  - Joint dislocation [Unknown]
  - Reaction to azo-dyes [Recovering/Resolving]
  - Blister [Recovered/Resolved]
  - Peripheral swelling [Recovering/Resolving]
  - Vomiting [Recovering/Resolving]
  - Venomous sting [Recovered/Resolved]
  - Diarrhoea [Recovering/Resolving]

NARRATIVE: CASE EVENT DATE: 20210712
